FAERS Safety Report 18114206 (Version 2)
Quarter: 2020Q3

REPORT INFORMATION
  Report Type: Spontaneous
  Country: SG (occurrence: SG)
  Receive Date: 20200805
  Receipt Date: 20200821
  Transmission Date: 20201103
  Serious: Yes (Other)
  Sender: FDA-Public Use
  Company Number: SG-ASTRAZENECA-2020SE95613

PATIENT
  Age: 45 Year
  Sex: Male

DRUGS (4)
  1. XIGDUO XR [Suspect]
     Active Substance: DAPAGLIFLOZIN PROPANEDIOL\METFORMIN HYDROCHLORIDE
     Indication: TYPE 2 DIABETES MELLITUS
     Dosage: 5/1000 1 TABLET DAILY
     Route: 048
     Dates: start: 20200714
  2. LOSARTAN. [Concomitant]
     Active Substance: LOSARTAN
     Dosage: 100.0MG UNKNOWN
  3. XIGDUO XR [Suspect]
     Active Substance: DAPAGLIFLOZIN PROPANEDIOL\METFORMIN HYDROCHLORIDE
     Indication: TYPE 2 DIABETES MELLITUS
     Dosage: 5/1000 1/2 TAB TWO TIMES A DAY
     Route: 048
  4. SIMVASTATIN. [Concomitant]
     Active Substance: SIMVASTATIN
     Dosage: 20.0MG UNKNOWN

REACTIONS (5)
  - Thirst [Recovered/Resolved]
  - Muscular weakness [Recovered/Resolved]
  - Lethargy [Recovered/Resolved]
  - Polydipsia [Recovered/Resolved]
  - Nocturia [Recovered/Resolved]

NARRATIVE: CASE EVENT DATE: 20200716
